FAERS Safety Report 8883677 (Version 3)
Quarter: 2013Q2

REPORT INFORMATION
  Report Type: Spontaneous
  Country: US (occurrence: US)
  Receive Date: 20121102
  Receipt Date: 20130417
  Transmission Date: 20140414
  Serious: Yes (Hospitalization, Disabling, Other)
  Sender: FDA-Public Use
  Company Number: US-009507513-1210USA014632

PATIENT
  Sex: Female
  Weight: 54.88 kg

DRUGS (7)
  1. FOSAMAX [Suspect]
     Indication: OSTEOPENIA
     Dosage: 70 MG, UNK
     Route: 048
     Dates: start: 20070418
  2. ALENDRONATE SODIUM [Suspect]
     Indication: OSTEOPENIA
     Dosage: 70 MG, UNK
     Route: 048
     Dates: start: 20080216, end: 20100930
  3. CENTRUM SILVER [Concomitant]
     Dosage: 400 IU, QD
     Dates: start: 2000
  4. CALCIUM (UNSPECIFIED) (+) VITAMIN D (UNSPECIFIED) [Concomitant]
     Dosage: 600 MG, TID
     Dates: start: 2000
  5. VITAMIN E [Concomitant]
     Dosage: 500 MG, QD
     Dates: start: 2000
  6. LISINOPRIL [Concomitant]
     Indication: HYPERTENSION
     Dosage: UNK
     Dates: start: 2005
  7. AMIODARONE [Concomitant]
     Indication: ATRIAL FIBRILLATION
     Dosage: UNK
     Dates: start: 2006

REACTIONS (31)
  - Femur fracture [Not Recovered/Not Resolved]
  - Femur fracture [Not Recovered/Not Resolved]
  - Femur fracture [Not Recovered/Not Resolved]
  - Open reduction of fracture [Unknown]
  - Open reduction of fracture [Unknown]
  - Surgery [Unknown]
  - Coronary artery bypass [Unknown]
  - Stress fracture [Not Recovered/Not Resolved]
  - Low turnover osteopathy [Not Recovered/Not Resolved]
  - Osteoporosis [Not Recovered/Not Resolved]
  - Coronary artery disease [Unknown]
  - Femur fracture [Unknown]
  - Cardiomegaly [Unknown]
  - Peripheral embolism [Unknown]
  - Surgery [Unknown]
  - White blood cell disorder [Unknown]
  - Vertebral foraminal stenosis [Unknown]
  - Intervertebral disc degeneration [Unknown]
  - Lumbar spinal stenosis [Unknown]
  - Aspiration [Unknown]
  - Pulmonary oedema [Unknown]
  - Pneumonitis [Unknown]
  - Lung infiltration [Unknown]
  - Osteoporosis [Unknown]
  - Myofascial pain syndrome [Unknown]
  - Anaemia [Unknown]
  - Cardiac disorder [Unknown]
  - Thermal burn [Unknown]
  - Bundle branch block left [Unknown]
  - Aortic stenosis [Unknown]
  - Myalgia [Not Recovered/Not Resolved]
